FAERS Safety Report 9701301 (Version 1)
Quarter: 2013Q4

REPORT INFORMATION
  Report Type: Spontaneous
  Country: US (occurrence: US)
  Receive Date: 20131121
  Receipt Date: 20131121
  Transmission Date: 20140711
  Serious: No
  Sender: FDA-Public Use
  Company Number: US-GILEAD-2008-0016251

PATIENT
  Age: 49 Year
  Sex: Female
  Weight: 53.52 kg

DRUGS (6)
  1. LETAIRIS [Suspect]
     Indication: PULMONARY HYPERTENSION
     Route: 048
     Dates: start: 20080201
  2. LISINOPRIL [Concomitant]
     Route: 048
  3. DILTIAZEM ER [Concomitant]
     Route: 048
  4. NEXIUM [Concomitant]
     Route: 048
  5. WELLBUTRIN SR [Concomitant]
     Route: 048
  6. LIPITOR [Concomitant]
     Route: 048

REACTIONS (1)
  - Hot flush [None]
